FAERS Safety Report 11230509 (Version 1)
Quarter: 2015Q2

REPORT INFORMATION
  Report Type: Spontaneous
  Country: US (occurrence: None)
  Receive Date: 20150629
  Receipt Date: 20150629
  Transmission Date: 20150821
  Serious: Yes (Disabling)
  Sender: FDA-Public Use
  Company Number: US2015090313

PATIENT
  Age: 72 Year
  Sex: Male

DRUGS (6)
  1. BUSPIRONE [Concomitant]
     Active Substance: BUSPIRONE HYDROCHLORIDE
  2. PRAVASTATIN [Concomitant]
     Active Substance: PRAVASTATIN\PRAVASTATIN SODIUM
  3. TRIUMEQ [Suspect]
     Active Substance: ABACAVIR SULFATE\DOLUTEGRAVIR SODIUM\LAMIVUDINE
     Indication: HIV INFECTION
     Dosage: 1 DF, 1D, ORAL
     Route: 048
     Dates: start: 20150224
  4. ACYCLOVIR. [Concomitant]
     Active Substance: ACYCLOVIR
  5. FENOFIBRATE. [Concomitant]
     Active Substance: FENOFIBRATE
  6. LISINOPRIL. [Concomitant]
     Active Substance: LISINOPRIL

REACTIONS (3)
  - Device failure [None]
  - Middle insomnia [None]
  - Salivary hypersecretion [None]

NARRATIVE: CASE EVENT DATE: 201506
